FAERS Safety Report 16019640 (Version 1)
Quarter: 2019Q1

REPORT INFORMATION
  Report Type: Spontaneous
  Country: GB (occurrence: GB)
  Receive Date: 20190228
  Receipt Date: 20190228
  Transmission Date: 20190418
  Serious: Yes (Disabling)
  Sender: FDA-Public Use
  Company Number: GB-JNJFOC-20190240053

PATIENT
  Age: 69 Year
  Sex: Female
  Weight: 97 kg

DRUGS (7)
  1. SUKKARTO [Concomitant]
     Active Substance: METFORMIN HYDROCHLORIDE
     Dosage: CUMULATIVE DOSE TO FIRST REACTION(NO.)??148.04167
     Route: 065
     Dates: start: 20180806
  2. VENTOLIN [Concomitant]
     Active Substance: ALBUTEROL SULFATE
     Dosage: INHALE 2 DOSES AS NEEDED FOUR TIMES DAILY
     Route: 055
     Dates: start: 20180613, end: 20190211
  3. CANAGLIFLOZIN [Suspect]
     Active Substance: CANAGLIFLOZIN
     Indication: PRODUCT USED FOR UNKNOWN INDICATION
     Dosage: CUMULATIVE DOSE TO FIRST REACTION(NO.)??6000
     Route: 048
     Dates: start: 20181102, end: 20190204
  4. ATORVASTATIN [Concomitant]
     Active Substance: ATORVASTATIN
     Dosage: CUMULATIVE DOSE TO FIRST REACTION(NO.)??148.04167
     Route: 065
     Dates: start: 20180806
  5. ZAPAIN [Concomitant]
     Active Substance: ACETAMINOPHEN\CODEINE PHOSPHATE
     Dosage: TAKE 1 OR 2, 4 TIMES PER DAY AS NEEDED
     Route: 065
     Dates: start: 20181023
  6. CLOPIDOGREL [Concomitant]
     Active Substance: CLOPIDOGREL BISULFATE
     Dosage: CUMULATIVE DOSE TO FIRST REACTION(NO.)??148.04167
     Route: 065
     Dates: start: 20180806
  7. TOLBUTAMIDE. [Concomitant]
     Active Substance: TOLBUTAMIDE
     Dosage: TAKE WITH FOOD.??CUMULATIVE DOSE TO FIRST REACTION(NO.) 592.1667
     Route: 065
     Dates: start: 20180806

REACTIONS (2)
  - Pain in extremity [Recovered/Resolved]
  - Dry skin [Recovering/Resolving]

NARRATIVE: CASE EVENT DATE: 20190101
